FAERS Safety Report 15907359 (Version 2)
Quarter: 2019Q1

REPORT INFORMATION
  Report Type: Spontaneous
  Country: US (occurrence: US)
  Receive Date: 20190204
  Receipt Date: 20190228
  Transmission Date: 20190417
  Serious: Yes (Hospitalization, Other)
  Sender: FDA-Public Use
  Company Number: US-SA-2019SA028933

PATIENT
  Sex: Female

DRUGS (6)
  1. ELIQUIS [Concomitant]
     Active Substance: APIXABAN
     Indication: ATRIAL FIBRILLATION
     Dosage: 5 MG, BID
  2. DEPAKOTE [Suspect]
     Active Substance: DIVALPROEX SODIUM
     Indication: SEIZURE
  3. WARFARIN SODIUM. [Suspect]
     Active Substance: WARFARIN SODIUM
     Dosage: 7 MG
  4. BABY ASPIRIN [Concomitant]
     Active Substance: ASPIRIN
     Indication: ATRIAL FIBRILLATION
     Dosage: 5 MG, BID
  5. PLAVIX [Suspect]
     Active Substance: CLOPIDOGREL BISULFATE
     Indication: PROPHYLAXIS
     Dosage: UNK, UNK
     Route: 065
     Dates: start: 19920615, end: 20110615
  6. WARFARIN SODIUM. [Suspect]
     Active Substance: WARFARIN SODIUM
     Dosage: 10 MG END DATE 2006

REACTIONS (6)
  - Hodgkin^s disease [Not Recovered/Not Resolved]
  - Ulcer haemorrhage [Unknown]
  - Amnesia [Unknown]
  - Circulatory collapse [Unknown]
  - Seizure [Unknown]
  - Thermal burn [Unknown]

NARRATIVE: CASE EVENT DATE: 1992
